FAERS Safety Report 4649096-2 (Version None)
Quarter: 2005Q2

REPORT INFORMATION
  Report Type: 
  Country: None (occurrence: None)
  Receive Date: 20050429
  Receipt Date: 20050425
  Transmission Date: 20051028
  Serious: Yes (Hospitalization, Other)
  Sender: FDA-Public Use
  Company Number: US-GLAXOSMITHKLINE-A0555581A

PATIENT
  Age: 80 Year
  Sex: Male

DRUGS (3)
  1. ZOFRAN [Suspect]
     Indication: PROPHYLAXIS OF NAUSEA AND VOMITING
     Dosage: 8MG UNKNOWN
     Route: 060
  2. CHEMOTHERAPY [Concomitant]
  3. RADIATION TREATMENT [Concomitant]

REACTIONS (1)
  - ATRIAL FIBRILLATION [None]
